FAERS Safety Report 9850211 (Version 1)
Quarter: 2014Q1

REPORT INFORMATION
  Report Type: Spontaneous
  Country: US (occurrence: None)
  Receive Date: 20140124
  Receipt Date: 20140124
  Transmission Date: 20141002
  Serious: Yes (Hospitalization)
  Sender: FDA-Public Use
  Company Number: None

PATIENT
  Age: 65 Year
  Sex: Female
  Weight: 110.22 kg

DRUGS (1)
  1. GAMUNEX [Suspect]
     Route: 042
     Dates: start: 20131231

REACTIONS (2)
  - Lip swelling [None]
  - Swollen tongue [None]
